FAERS Safety Report 7385294-5 (Version None)
Quarter: 2011Q1

REPORT INFORMATION
  Report Type: 
  Country: None (occurrence: None)
  Receive Date: 20110330
  Receipt Date: 20100517
  Transmission Date: 20110831
  Serious: No
  Sender: FDA-Public Use
  Company Number: US-MYLANLABS-2010S1007841

PATIENT
  Age: 56 Year
  Sex: Female

DRUGS (9)
  1. MULTI-VITAMINS [Concomitant]
  2. ALEVE [Concomitant]
  3. POTASSIUM CHLORIDE [Concomitant]
  4. LASIX [Concomitant]
  5. TRAZODONE HCL [Concomitant]
  6. KLONOPIN [Concomitant]
  7. EMSAM [Suspect]
     Indication: DEPRESSION
     Route: 062
     Dates: start: 20091201, end: 20100401
  8. SIMVASTATIN [Concomitant]
  9. PREVACID [Concomitant]

REACTIONS (1)
  - APPLICATION SITE ERYTHEMA [None]
